FAERS Safety Report 6058866-8 (Version None)
Quarter: 2009Q1

REPORT INFORMATION
  Report Type: 
  Country: None (occurrence: None)
  Receive Date: 20090130
  Receipt Date: 20090123
  Transmission Date: 20090719
  Serious: Yes (Hospitalization)
  Sender: FDA-Public Use
  Company Number: SG-AVENTIS-200910472GDDC

PATIENT
  Age: 52 Year
  Sex: Female
  Weight: 47.1 kg

DRUGS (5)
  1. DOCETAXEL [Suspect]
     Indication: NON-SMALL CELL LUNG CANCER
     Dosage: DOSE: UNK
     Route: 042
     Dates: start: 20080904
  2. TRAMADOL HCL [Concomitant]
     Dosage: DOSE: UNK
  3. METOCLOPRAMIDE [Concomitant]
     Dosage: DOSE: UNK
  4. CHLORPHENTERMINE 65MG TAB [Concomitant]
     Dosage: DOSE: UNK
  5. OMEPRAZOLE [Concomitant]
     Dosage: DOSE: UNK

REACTIONS (4)
  - DIZZINESS [None]
  - HYPOACUSIS [None]
  - SUDDEN VISUAL LOSS [None]
  - VOMITING [None]
